FAERS Safety Report 5887021-7 (Version None)
Quarter: 2008Q3

REPORT INFORMATION
  Report Type: 
  Country: None (occurrence: None)
  Receive Date: 20080915
  Receipt Date: 20080903
  Transmission Date: 20090109
  Serious: Yes (Hospitalization)
  Sender: FDA-Public Use
  Company Number: 2008AL009661

PATIENT
  Age: 85 Year
  Sex: Female

DRUGS (14)
  1. GABAPENTIN [Suspect]
     Indication: PAIN
     Dosage: 1500 MG; QD; PO
     Route: 048
     Dates: start: 20080708, end: 20080714
  2. METFORMIN HYDROCHLORIDE [Suspect]
     Indication: DIABETES MELLITUS
     Dosage: 500 MG; QD; PO
     Route: 048
     Dates: start: 20080716
  3. COZAAR [Concomitant]
  4. DURAGESIC-100 [Concomitant]
  5. WARFARIN SODIUM [Concomitant]
  6. PREDNISOLONE [Concomitant]
  7. HERACILLIN [Concomitant]
  8. SOTALOL [Concomitant]
  9. TRADOLAN [Concomitant]
  10. INSULATARD [Concomitant]
  11. OMEPRAZOLE [Concomitant]
  12. IMPUGAN [Concomitant]
  13. SPIRONOLACTONE [Concomitant]
  14. INSULIN ASPART [Concomitant]

REACTIONS (14)
  - BLOOD GLUCOSE ABNORMAL [None]
  - BLOOD PRESSURE SYSTOLIC DECREASED [None]
  - BLOOD SODIUM DECREASED [None]
  - DRUG INEFFECTIVE [None]
  - HEART RATE INCREASED [None]
  - INTERNATIONAL NORMALISED RATIO INCREASED [None]
  - LACTIC ACIDOSIS [None]
  - LEG AMPUTATION [None]
  - LOCALISED INFECTION [None]
  - LOSS OF CONSCIOUSNESS [None]
  - PERIPHERAL ISCHAEMIA [None]
  - RENAL IMPAIRMENT [None]
  - SKIN NECROSIS [None]
  - STAPHYLOCOCCAL SEPSIS [None]
